FAERS Safety Report 5219814-3 (Version None)
Quarter: 2007Q1

REPORT INFORMATION
  Report Type: 
  Country: None (occurrence: None)
  Receive Date: 20070125
  Receipt Date: 20070118
  Transmission Date: 20070707
  Serious: Yes (Disabling)
  Sender: FDA-Public Use
  Company Number: CA-BOEHRINGER INGELHEIM PHARMACEUTICALS, INC.-2007-CN-00061CN

PATIENT
  Sex: Female
  Weight: 65.5 kg

DRUGS (1)
  1. MICARDIS [Suspect]
     Dates: end: 20070117

REACTIONS (2)
  - ASTHENIA [None]
  - DISTURBANCE IN ATTENTION [None]
